FAERS Safety Report 6589735-2 (Version None)
Quarter: 2010Q1

REPORT INFORMATION
  Report Type: 
  Country: None (occurrence: None)
  Receive Date: 20100219
  Receipt Date: 20100218
  Transmission Date: 20100710
  Serious: Yes (Other)
  Sender: FDA-Public Use
  Company Number: US-RB-002617-10

PATIENT
  Sex: Male

DRUGS (3)
  1. MUCINEX [Suspect]
     Route: 048
  2. AVALON [Concomitant]
  3. KINAPRIL [Concomitant]

REACTIONS (1)
  - HYPERTENSION [None]
